FAERS Safety Report 18930742 (Version 3)
Quarter: 2021Q2

REPORT INFORMATION
  Report Type: Spontaneous
  Country: CN (occurrence: CN)
  Receive Date: 20210223
  Receipt Date: 20210420
  Transmission Date: 20210717
  Serious: Yes (Other)
  Sender: FDA-Public Use
  Company Number: CN-PFIZER INC-2021174376

PATIENT
  Age: 8 Month

DRUGS (2)
  1. ZITHROMAX [Suspect]
     Active Substance: AZITHROMYCIN DIHYDRATE
     Indication: COUGH
     Dosage: 100 MG
     Route: 041
     Dates: start: 20210210, end: 20210210
  2. ZITHROMAX [Suspect]
     Active Substance: AZITHROMYCIN DIHYDRATE
     Indication: PYREXIA

REACTIONS (3)
  - Shock [Unknown]
  - Cerebral palsy [Unknown]
  - Off label use [Unknown]

NARRATIVE: CASE EVENT DATE: 2021
